FAERS Safety Report 6819755-1 (Version None)
Quarter: 2010Q3

REPORT INFORMATION
  Report Type: 
  Country: None (occurrence: None)
  Receive Date: 20100707
  Receipt Date: 20100625
  Transmission Date: 20110219
  Serious: Yes (Hospitalization)
  Sender: FDA-Public Use
  Company Number: KR-SANOFI-AVENTIS-F01200700118

PATIENT
  Age: 74 Year
  Sex: Female

DRUGS (5)
  1. OXALIPLATIN [Suspect]
     Dosage: UNIT DOSE: 130 MG/M2
     Route: 041
     Dates: start: 20061123, end: 20061123
  2. OXALIPLATIN [Suspect]
     Route: 041
     Dates: start: 20061012, end: 20061012
  3. CAPECITABINE [Suspect]
     Dosage: DOSE TEXT: DAYS 1-15 (2 WEEKS ON TREATMENT, 1 WEEK REST)
     Route: 048
     Dates: start: 20061123, end: 20061207
  4. CAPECITABINE [Suspect]
     Dosage: DOSE TEXT: DAYS 1-15 (2 WEEKS ON TREATMENT, 1 WEEK REST)
     Route: 048
     Dates: start: 20061012
  5. HYDROCHLOROTHIAZIDE [Concomitant]
     Dates: start: 19960615, end: 20061214

REACTIONS (2)
  - NEUTROPENIA [None]
  - THROMBOCYTOPENIA [None]
